FAERS Safety Report 24611590 (Version 1)
Quarter: 2024Q4

REPORT INFORMATION
  Report Type: Report from Study
  Country: GB (occurrence: GB)
  Receive Date: 20241113
  Receipt Date: 20241113
  Transmission Date: 20250114
  Serious: Yes (Other)
  Sender: RANBAXY
  Company Number: GB-SUN PHARMACEUTICAL INDUSTRIES LTD-2024R1-478509

PATIENT

DRUGS (1)
  1. CARBOPLATIN [Suspect]
     Active Substance: CARBOPLATIN
     Indication: Retinoblastoma
     Dosage: 280 MILLIGRAM/SQ. METER/FOR THE FIRST 2 CYCLES
     Route: 065

REACTIONS (2)
  - Disease recurrence [Unknown]
  - Febrile neutropenia [Unknown]
